FAERS Safety Report 4715656-3 (Version None)
Quarter: 2005Q3

REPORT INFORMATION
  Report Type: 
  Country: None (occurrence: None)
  Receive Date: 20050713
  Receipt Date: 20050630
  Transmission Date: 20060218
  Serious: Yes (Life-Threatening)
  Sender: FDA-Public Use
  Company Number: MK200507-0007-1

PATIENT
  Age: 48 Year
  Sex: Male

DRUGS (1)
  1. OPTIRAY 300 [Suspect]
     Dosage: SINGLE USE
     Dates: start: 20050321, end: 20050321

REACTIONS (8)
  - ANAPHYLACTOID REACTION [None]
  - BRADYCARDIA [None]
  - FEELING HOT [None]
  - HYPOTENSION [None]
  - LOSS OF CONSCIOUSNESS [None]
  - MYOCLONUS [None]
  - NAUSEA [None]
  - URINARY INCONTINENCE [None]
